FAERS Safety Report 5740974-X (Version None)
Quarter: 2008Q2

REPORT INFORMATION
  Report Type: 
  Country: None (occurrence: None)
  Receive Date: 20080516
  Receipt Date: 20080507
  Transmission Date: 20081010
  Serious: Yes (Congenital Anomaly, Other)
  Sender: FDA-Public Use
  Company Number: GB-ABBOTT-07P-167-0426341-00

PATIENT
  Sex: Female

DRUGS (1)
  1. VALPROIC ACID [Suspect]
     Indication: DRUG EXPOSURE DURING PREGNANCY
     Route: 064

REACTIONS (38)
  - ABNORMAL BEHAVIOUR [None]
  - AGGRESSION [None]
  - ANAL ATRESIA [None]
  - ASTHMA [None]
  - ASTIGMATISM [None]
  - CLOACAL EXSTROPHY [None]
  - CONGENITAL BLADDER ANOMALY [None]
  - CONGENITAL EYELID MALFORMATION [None]
  - CONGENITAL GENITOURINARY ABNORMALITY [None]
  - CONGENITAL HIP DEFORMITY [None]
  - CONGENITAL HYPOTHYROIDISM [None]
  - CONGENITAL INTESTINAL MALFORMATION [None]
  - CONGENITAL NOSE MALFORMATION [None]
  - CONGENITAL SPINAL CORD ANOMALY [None]
  - CONGENITAL URINARY TRACT OBSTRUCTION [None]
  - COORDINATION ABNORMAL [None]
  - DEVELOPMENTAL DELAY [None]
  - DRUG EXPOSURE DURING PREGNANCY [None]
  - DYSMORPHISM [None]
  - EAR MALFORMATION [None]
  - FATIGUE [None]
  - FEEDING DISORDER NEONATAL [None]
  - FOETAL ANTICONVULSANT SYNDROME [None]
  - FOOD ALLERGY [None]
  - FOOT DEFORMITY [None]
  - HIP DYSPLASIA [None]
  - HYDRONEPHROSIS [None]
  - ILL-DEFINED DISORDER [None]
  - IMMUNISATION REACTION [None]
  - INFECTION SUSCEPTIBILITY INCREASED [None]
  - JOINT INSTABILITY [None]
  - NEONATAL DISORDER [None]
  - PREMATURE BABY [None]
  - SKULL MALFORMATION [None]
  - SPEECH DISORDER DEVELOPMENTAL [None]
  - UNEVALUABLE EVENT [None]
  - URETHRAL INTRINSIC SPHINCTER DEFICIENCY [None]
  - URINARY TRACT OBSTRUCTION [None]
